FAERS Safety Report 11792084 (Version 3)
Quarter: 2015Q4

REPORT INFORMATION
  Report Type: Spontaneous
  Country: US (occurrence: US)
  Receive Date: 20151201
  Receipt Date: 20151231
  Transmission Date: 20160305
  Serious: Yes (Hospitalization)
  Sender: FDA-Public Use
  Company Number: US-B.I. PHARMACEUTICALS,INC./RIDGEFIELD-2015-BI-66375BP

PATIENT
  Age: 55 Year
  Sex: Male
  Weight: 102.06 kg

DRUGS (1)
  1. FLOMAX [Suspect]
     Active Substance: TAMSULOSIN HYDROCHLORIDE
     Indication: NEPHROLITHIASIS
     Dosage: 0.4 MG
     Route: 048
     Dates: start: 2006, end: 20151102

REACTIONS (9)
  - Hypotension [Unknown]
  - Chromaturia [Unknown]
  - Off label use [Unknown]
  - Urine odour abnormal [Unknown]
  - Loss of consciousness [Unknown]
  - Nephrectomy [Recovered/Resolved]
  - Micturition urgency [Unknown]
  - Genital discharge [Unknown]
  - Urine flow decreased [Unknown]

NARRATIVE: CASE EVENT DATE: 2006
